FAERS Safety Report 6346868-3 (Version None)
Quarter: 2009Q3

REPORT INFORMATION
  Report Type: 
  Country: None (occurrence: None)
  Receive Date: 20090909
  Receipt Date: 20090909
  Transmission Date: 20100115
  Serious: Yes (Hospitalization)
  Sender: FDA-Public Use
  Company Number: None

PATIENT
  Sex: Female
  Weight: 77.3 kg

DRUGS (3)
  1. CARBOPLATIN [Suspect]
     Dosage: 274 MG
  2. ERBITUX [Suspect]
     Dosage: 443 MG
  3. TAXOL [Suspect]
     Dosage: 80 MG

REACTIONS (7)
  - FATIGUE [None]
  - HOT FLUSH [None]
  - HYPERHIDROSIS [None]
  - MALAISE [None]
  - NEUTROPENIA [None]
  - PYREXIA [None]
  - WHITE BLOOD CELL COUNT DECREASED [None]
